FAERS Safety Report 9465184 (Version 2)
Quarter: 2013Q3

REPORT INFORMATION
  Report Type: Spontaneous
  Country: US (occurrence: US)
  Receive Date: 20130819
  Receipt Date: 20130903
  Transmission Date: 20140515
  Serious: Yes (Death, Hospitalization)
  Sender: FDA-Public Use
  Company Number: US-BAXTER-2013BAX032170

PATIENT
  Age: 58 Year
  Sex: Male

DRUGS (2)
  1. DIANEAL LOW CALCIUM [Suspect]
     Indication: PERITONEAL DIALYSIS
     Route: 033
     Dates: start: 201301, end: 20130824
  2. GENTAMICIN [Suspect]
     Indication: PERITONITIS

REACTIONS (9)
  - Cardiogenic shock [Fatal]
  - Septic shock [Fatal]
  - Pulmonary hypertension [Recovering/Resolving]
  - Sepsis [Recovering/Resolving]
  - Body temperature decreased [Unknown]
  - Cyanosis [Unknown]
  - Hypotension [Unknown]
  - Peritonitis [Recovering/Resolving]
  - Peritoneal dialysis complication [Unknown]
